APPROVED DRUG PRODUCT: OLMESARTAN MEDOXOMIL
Active Ingredient: OLMESARTAN MEDOXOMIL
Strength: 20MG
Dosage Form/Route: TABLET;ORAL
Application: A210682 | Product #002 | TE Code: AB
Applicant: CADILA PHARMACEUTICALS LTD
Approved: Nov 8, 2024 | RLD: No | RS: No | Type: RX